FAERS Safety Report 8128811-X (Version None)
Quarter: 2012Q1

REPORT INFORMATION
  Report Type: 
  Country: None (occurrence: None)
  Receive Date: 20120210
  Receipt Date: 20110414
  Transmission Date: 20120608
  Serious: No
  Sender: FDA-Public Use
  Company Number: US-BRISTOL-MYERS SQUIBB COMPANY-15592967

PATIENT
  Sex: Male

DRUGS (2)
  1. METHOTREXATE [Suspect]
  2. ORENCIA [Suspect]

REACTIONS (2)
  - COUGH [None]
  - PAIN [None]
